FAERS Safety Report 8474828-5 (Version None)
Quarter: 2012Q2

REPORT INFORMATION
  Report Type: 
  Country: None (occurrence: None)
  Receive Date: 20120628
  Receipt Date: 20120618
  Transmission Date: 20120825
  Serious: Yes (Life-Threatening, Hospitalization, Other)
  Sender: FDA-Public Use
  Company Number: FR-BRISTOL-MYERS SQUIBB COMPANY-16695033

PATIENT
  Age: 89 Year
  Sex: Female

DRUGS (8)
  1. CALCIPARINE [Interacting]
     Indication: PROPHYLAXIS
     Dosage: 1 DF = 0.3 TO 0.35 ML TWICE OR THREE TIMES A DAY
     Route: 058
     Dates: start: 20111028, end: 20111105
  2. OMEPRAZOLE [Concomitant]
  3. CORDARONE [Concomitant]
  4. COUMADIN [Suspect]
     Indication: ATRIAL FIBRILLATION
     Dosage: STARTED TO PRIOR TO 2011
     Route: 048
     Dates: end: 20111105
  5. FERROUS SULFATE TAB [Concomitant]
  6. OFLOXACIN [Interacting]
     Indication: URINARY TRACT INFECTION
     Route: 048
     Dates: start: 20111031, end: 20111111
  7. LASIX [Concomitant]
  8. LORAZEPAM [Concomitant]

REACTIONS (7)
  - MUSCLE HAEMORRHAGE [None]
  - RENAL FAILURE [None]
  - HYPOVOLAEMIC SHOCK [None]
  - DIARRHOEA [None]
  - DRUG INTERACTION [None]
  - OVERDOSE [None]
  - INTERNATIONAL NORMALISED RATIO INCREASED [None]
